FAERS Safety Report 9022838 (Version 1)
Quarter: 2013Q1

REPORT INFORMATION
  Report Type: Spontaneous
  Country: US (occurrence: US)
  Receive Date: 20130120
  Receipt Date: 20130120
  Transmission Date: 20140127
  Serious: No
  Sender: FDA-Public Use
  Company Number: US-ALLERGAN-1217060US

PATIENT
  Age: 50 Year
  Sex: Male

DRUGS (1)
  1. BOTOX? [Suspect]
     Indication: MUSCLE SPASTICITY
     Dosage: 400 UNITS, SINGLE
     Route: 030

REACTIONS (1)
  - Hypoaesthesia [Unknown]
